FAERS Safety Report 4582852-8 (Version None)
Quarter: 2005Q1

REPORT INFORMATION
  Report Type: 
  Country: None (occurrence: None)
  Receive Date: 20050121
  Receipt Date: 20041105
  Transmission Date: 20050727
  Serious: Yes (Other)
  Sender: FDA-Public Use
  Company Number: 2004090456

PATIENT

DRUGS (1)
  1. INSPRA [Suspect]
     Indication: ILL-DEFINED DISORDER
     Dosage: 25 MG (DAILY)

REACTIONS (1)
  - HYPERKALAEMIA [None]
